FAERS Safety Report 17994201 (Version 3)
Quarter: 2020Q3

REPORT INFORMATION
  Report Type: Spontaneous
  Country: US (occurrence: US)
  Receive Date: 20200708
  Receipt Date: 20200811
  Transmission Date: 20201103
  Serious: No
  Sender: FDA-Public Use
  Company Number: US-ASTRAZENECA-2020SE84985

PATIENT
  Sex: Female
  Weight: 84.8 kg

DRUGS (12)
  1. BYDUREON [Suspect]
     Active Substance: EXENATIDE
     Indication: TYPE 2 DIABETES MELLITUS
     Route: 058
     Dates: start: 202001
  2. HYDROCODONE [Concomitant]
     Active Substance: HYDROCODONE
     Dosage: 5.0MG UNKNOWN
  3. VITAMIN C [Concomitant]
     Active Substance: ASCORBIC ACID
  4. VITAMIN B [Concomitant]
     Active Substance: VITAMIN B
  5. LEVOTHYROXINE. [Concomitant]
     Active Substance: LEVOTHYROXINE
     Dosage: 112.0UG UNKNOWN
  6. MULTIVITAMIN [Concomitant]
     Active Substance: VITAMINS
  7. DILTIAZEM ER [Concomitant]
     Active Substance: DILTIAZEM
     Dosage: 180.0MG UNKNOWN
  8. GLIMIPERIDE [Concomitant]
     Active Substance: GLIMEPIRIDE
     Dosage: 2.0MG UNKNOWN
  9. FUROSEMIDE. [Concomitant]
     Active Substance: FUROSEMIDE
     Dosage: 20.0MG UNKNOWN
  10. OMEPRAZOLE. [Suspect]
     Active Substance: OMEPRAZOLE
     Dosage: 40.0MG UNKNOWN
     Route: 048
  11. PREMARIN [Concomitant]
     Active Substance: ESTROGENS, CONJUGATED
  12. SPRINALACTONE [Concomitant]
     Dosage: 50.0MG UNKNOWN

REACTIONS (6)
  - Gait disturbance [Unknown]
  - Device malfunction [Unknown]
  - Nerve compression [Unknown]
  - Intentional device misuse [Not Recovered/Not Resolved]
  - Circumstance or information capable of leading to medication error [Unknown]
  - Pain [Unknown]
